FAERS Safety Report 11277027 (Version 4)
Quarter: 2016Q1

REPORT INFORMATION
  Report Type: Report from Study
  Country: US (occurrence: US)
  Receive Date: 20150716
  Receipt Date: 20160324
  Transmission Date: 20160525
  Serious: Yes (Hospitalization)
  Sender: FDA-Public Use
  Company Number: US-JNJFOC-20141013808

PATIENT
  Age: 53 Year
  Sex: Male
  Weight: 99.3 kg

DRUGS (14)
  1. USTEKINUMAB [Suspect]
     Active Substance: USTEKINUMAB
     Indication: CROHN^S DISEASE
     Route: 058
     Dates: start: 20120925
  2. TYLENOL [Concomitant]
     Active Substance: ACETAMINOPHEN
     Route: 048
     Dates: start: 20120731, end: 20120926
  3. USTEKINUMAB [Suspect]
     Active Substance: USTEKINUMAB
     Indication: CROHN^S DISEASE
     Route: 058
     Dates: start: 20120731
  4. LOPERAMIDE [Concomitant]
     Active Substance: LOPERAMIDE
     Indication: CROHN^S DISEASE
     Route: 048
     Dates: start: 20130606
  5. ULORIC [Concomitant]
     Active Substance: FEBUXOSTAT
     Indication: GOUT
     Route: 048
     Dates: start: 2010
  6. NEXIUM [Concomitant]
     Active Substance: ESOMEPRAZOLE MAGNESIUM
     Indication: GASTROOESOPHAGEAL REFLUX DISEASE
     Route: 048
     Dates: start: 2009
  7. CALCIUM WITH VITAMIN D [Concomitant]
     Active Substance: CALCIUM\VITAMIN D
     Route: 048
     Dates: start: 2012
  8. MULTIVITAMINS [Concomitant]
     Active Substance: VITAMINS
     Route: 048
  9. NAPROXEN. [Concomitant]
     Active Substance: NAPROXEN
     Indication: ARTHRITIS
     Route: 048
  10. WELLBUTRIN [Concomitant]
     Active Substance: BUPROPION HYDROCHLORIDE
     Route: 048
     Dates: start: 20121218
  11. VICODIN [Concomitant]
     Active Substance: ACETAMINOPHEN\HYDROCODONE BITARTRATE
     Indication: CROHN^S DISEASE
     Route: 048
  12. SAW PALMETTO [Concomitant]
     Active Substance: SAW PALMETTO
     Route: 048
     Dates: start: 2010
  13. BENADRYL [Concomitant]
     Active Substance: DIPHENHYDRAMINE HYDROCHLORIDE
     Route: 042
     Dates: start: 20120731, end: 20120926
  14. MAGNESIUM [Concomitant]
     Active Substance: MAGNESIUM
     Indication: BLOOD MAGNESIUM DECREASED
     Route: 048
     Dates: start: 20140625

REACTIONS (1)
  - Anal abscess [Recovered/Resolved]

NARRATIVE: CASE EVENT DATE: 20140925
